FAERS Safety Report 6274785-6 (Version None)
Quarter: 2009Q3

REPORT INFORMATION
  Report Type: 
  Country: None (occurrence: None)
  Receive Date: 20090717
  Receipt Date: 20090701
  Transmission Date: 20100115
  Serious: Yes (Death)
  Sender: FDA-Public Use
  Company Number: IMP_04476_2009

PATIENT
  Age: 16 Year
  Sex: Male
  Weight: 125 kg

DRUGS (2)
  1. BUPROPION HCL [Suspect]
     Dosage: (INGESTED THIRTY 300 MG TABLETS
  2. SODIUM SALICYLATE ECT [Concomitant]

REACTIONS (11)
  - AGITATION [None]
  - CARDIO-RESPIRATORY ARREST [None]
  - CARDIOMEGALY [None]
  - CONVULSION [None]
  - DRUG TOXICITY [None]
  - HALLUCINATION [None]
  - LOSS OF CONSCIOUSNESS [None]
  - OBESITY [None]
  - OVERDOSE [None]
  - PULMONARY OEDEMA [None]
  - VOMITING [None]
